APPROVED DRUG PRODUCT: RISPERIDONE
Active Ingredient: RISPERIDONE
Strength: 1MG/ML
Dosage Form/Route: SOLUTION;ORAL
Application: A079158 | Product #001
Applicant: LANNETT CO INC
Approved: Dec 3, 2010 | RLD: No | RS: No | Type: DISCN